FAERS Safety Report 6382382-7 (Version None)
Quarter: 2009Q3

REPORT INFORMATION
  Report Type: 
  Country: None (occurrence: None)
  Receive Date: 20090928
  Receipt Date: 20090928
  Transmission Date: 20100115
  Serious: No
  Sender: FDA-Public Use
  Company Number: None

PATIENT
  Sex: Female
  Weight: 92.5338 kg

DRUGS (1)
  1. SYNTHROID [Suspect]
     Indication: HYPOTHYROIDISM
     Dosage: 25 MCG 1/DAY ORAL
     Route: 048
     Dates: start: 20090701, end: 20090801

REACTIONS (5)
  - ABDOMINAL PAIN [None]
  - ARTHROPATHY [None]
  - DIARRHOEA [None]
  - DYSPEPSIA [None]
  - PRODUCT SUBSTITUTION ISSUE [None]
